FAERS Safety Report 5261702-0 (Version None)
Quarter: 2007Q1

REPORT INFORMATION
  Report Type: 
  Country: None (occurrence: None)
  Receive Date: 20070307
  Receipt Date: 20070222
  Transmission Date: 20070707
  Serious: Yes (Other)
  Sender: FDA-Public Use
  Company Number: 236346

PATIENT
  Age: 54 Year
  Sex: Female
  Weight: 72.6 kg

DRUGS (11)
  1. HERCEPTIN [Suspect]
     Indication: BREAST CANCER
     Dosage: 150 MG, 1/WEEK, INTRAVENOUS
     Route: 042
     Dates: start: 20070112
  2. ALLERGY SHOTS (ALLERGENIC EXTRACTS) [Suspect]
     Indication: HYPERSENSITIVITY
     Dosage: 1/WEEK
  3. TAXOL [Concomitant]
  4. BENADRYL [Concomitant]
  5. KYTRIL [Concomitant]
  6. ZANTAC [Concomitant]
  7. DECADRON [Concomitant]
  8. THYROID TAB [Concomitant]
  9. PAXIL [Concomitant]
  10. WELLBUTRIN [Concomitant]
  11. DRIXORAL (DEXBROMPHENIRAMINE MALAEATE, PSEUDOEPHEDRINE SULFATE) [Concomitant]

REACTIONS (3)
  - ALANINE AMINOTRANSFERASE INCREASED [None]
  - ANAPHYLACTIC REACTION [None]
  - ASPARTATE AMINOTRANSFERASE INCREASED [None]
